FAERS Safety Report 9174551 (Version 1)
Quarter: 2013Q1

REPORT INFORMATION
  Report Type: Spontaneous
  Country: US (occurrence: US)
  Receive Date: 20130320
  Receipt Date: 20130320
  Transmission Date: 20140127
  Serious: No
  Sender: FDA-Public Use
  Company Number: US-MYLANLABS-2012S1021305

PATIENT
  Age: 63 Year
  Sex: Female

DRUGS (1)
  1. ESTRADIOL TRANSDERMAL SYSTEM, USP [Suspect]
     Indication: HORMONE REPLACEMENT THERAPY
     Dosage: CHANGES Q WEEK
     Route: 062
     Dates: end: 20120818

REACTIONS (3)
  - Application site urticaria [Recovered/Resolved]
  - Application site pain [Recovered/Resolved]
  - Rash [Recovered/Resolved]
